FAERS Safety Report 5427700-9 (Version None)
Quarter: 2007Q3

REPORT INFORMATION
  Report Type: 
  Country: None (occurrence: None)
  Receive Date: 20070823
  Receipt Date: 20070813
  Transmission Date: 20080115
  Serious: Yes (Death)
  Sender: FDA-Public Use
  Company Number: 2006000460

PATIENT
  Age: 47 Year
  Sex: Male

DRUGS (8)
  1. ERLOTINIB (TABLET) (ERLOTINIB HCL) [Suspect]
     Indication: PANCREATIC CARCINOMA
     Dosage: 50 MG (QD), ORAL
     Route: 048
     Dates: start: 20060117
  2. BEVACIZUMAB/PLACEBO (INJECTION FOR INFUSION) [Suspect]
     Indication: PANCREATIC CARCINOMA
     Dosage: 445 MG (Q2W), INTRAVENOUS
     Route: 042
     Dates: start: 20060117
  3. GEMCITABINE [Suspect]
     Indication: PANCREATIC CARCINOMA
     Dosage: 2000MG/M^2 (QW), INTRAVENOUS
     Route: 042
     Dates: start: 20060117
  4. DALTEPARIN SODIUM [Concomitant]
  5. BUPRENORPHINE HCL [Concomitant]
  6. ACARBOSE [Concomitant]
  7. METFORMIN HCL [Concomitant]
  8. FUROSEMIDE [Concomitant]

REACTIONS (2)
  - CIRCULATORY COLLAPSE [None]
  - SUDDEN DEATH [None]
